FAERS Safety Report 24111738 (Version 1)
Quarter: 2024Q3

REPORT INFORMATION
  Report Type: Spontaneous
  Country: IN (occurrence: IN)
  Receive Date: 20240718
  Receipt Date: 20240718
  Transmission Date: 20241017
  Serious: Yes (Other)
  Sender: PHARMACEUTICAL ASSOC
  Company Number: IN-PAIPHARMA-2024-IN-000119

PATIENT
  Age: 20 Year
  Sex: Male

DRUGS (2)
  1. CYPROHEPTADINE HYDROCHLORIDE [Suspect]
     Active Substance: CYPROHEPTADINE HYDROCHLORIDE
     Indication: Product used for unknown indication
     Dosage: 8 MG DAILY
  2. DEXAMETHASONE [Suspect]
     Active Substance: DEXAMETHASONE
     Indication: Product used for unknown indication
     Dosage: 0.5 MG TWICE DAILY

REACTIONS (2)
  - Suicidal behaviour [Unknown]
  - Obsessive-compulsive disorder [Unknown]
